FAERS Safety Report 5701068-2 (Version None)
Quarter: 2008Q2

REPORT INFORMATION
  Report Type: 
  Country: None (occurrence: None)
  Receive Date: 20080407
  Receipt Date: 20080320
  Transmission Date: 20081010
  Serious: Yes (Other)
  Sender: FDA-Public Use
  Company Number: 8031143

PATIENT
  Age: 49 Year
  Sex: Female

DRUGS (4)
  1. XUSAL [Suspect]
     Indication: DYSPNOEA
  2. XUSAL [Suspect]
     Indication: RASH
  3. XUSAL [Suspect]
     Indication: RHINORRHOEA
  4. ERGENYL CHRONO [Suspect]
     Indication: CONVULSION
     Dosage: 300 MG

REACTIONS (4)
  - CONVULSION [None]
  - DRUG LEVEL DECREASED [None]
  - OEDEMA PERIPHERAL [None]
  - SKIN DISCOLOURATION [None]
